FAERS Safety Report 4653676-8 (Version None)
Quarter: 2005Q2

REPORT INFORMATION
  Report Type: 
  Country: None (occurrence: None)
  Receive Date: 20050505
  Receipt Date: 20040329
  Transmission Date: 20051028
  Serious: Yes (Hospitalization, Other)
  Sender: FDA-Public Use
  Company Number: BE-JNJFOC-20040303560

PATIENT
  Age: 6 Year
  Sex: Male

DRUGS (3)
  1. CISAPRIDE [Suspect]
     Indication: RESPIRATORY DISORDER
     Route: 049
     Dates: start: 20010301, end: 20030610
  2. CISAPRIDE [Suspect]
     Route: 049
     Dates: start: 20010301, end: 20030610
  3. BECONASE [Concomitant]
     Indication: DRUG USE FOR UNKNOWN INDICATION
     Route: 065

REACTIONS (2)
  - DRUG INEFFECTIVE [None]
  - FUNDOPLICATION [None]
